FAERS Safety Report 10906752 (Version 1)
Quarter: 2015Q1

REPORT INFORMATION
  Report Type: Spontaneous
  Country: US (occurrence: None)
  Receive Date: 20150309
  Receipt Date: 20150309
  Transmission Date: 20150721
  Serious: No
  Sender: FDA-Public Use
  Company Number: None

PATIENT
  Age: 55 Year
  Sex: Male
  Weight: 115.67 kg

DRUGS (8)
  1. FLEXERIL [Concomitant]
     Active Substance: CYCLOBENZAPRINE HYDROCHLORIDE
  2. COQ10 [Concomitant]
     Active Substance: UBIDECARENONE
  3. KLONOPIN [Concomitant]
     Active Substance: CLONAZEPAM
  4. VITAMIN D [Concomitant]
     Active Substance: CHOLECALCIFEROL
  5. LAMOTRIGINE. [Concomitant]
     Active Substance: LAMOTRIGINE
  6. WELLBUTRIN [Concomitant]
     Active Substance: BUPROPION HYDROCHLORIDE
  7. SIMVASTATIN. [Suspect]
     Active Substance: SIMVASTATIN
     Indication: HYPERCHOLESTEROLAEMIA
  8. LITHIUM [Concomitant]
     Active Substance: LITHIUM CARBONATE

REACTIONS (1)
  - Myalgia [None]

NARRATIVE: CASE EVENT DATE: 20141015
